FAERS Safety Report 8571630-0 (Version None)
Quarter: 2012Q3

REPORT INFORMATION
  Report Type: 
  Country: None (occurrence: None)
  Receive Date: 20120806
  Receipt Date: 20120725
  Transmission Date: 20120928
  Serious: Yes (Other)
  Sender: FDA-Public Use
  Company Number: US-BAYER-2012-050963

PATIENT
  Age: 51 Year
  Sex: Female

DRUGS (8)
  1. YAZ [Suspect]
     Dosage: UNK
     Dates: start: 20060706, end: 20060816
  2. AMOXICILLIN [Concomitant]
     Dosage: 500 MG, UNK
     Route: 048
  3. YASMIN [Suspect]
     Dosage: UNK
     Dates: start: 20060816, end: 20080923
  4. ACCUPRIL [Concomitant]
     Indication: HYPERTENSION
     Dosage: 10 MG, DAILY
     Route: 048
  5. TAMIFLU [Concomitant]
     Dosage: 75 MG, UNK
     Route: 048
  6. DROSPIRENONE AND ETHINYL ESTRADIOL [Suspect]
     Dosage: UNK
     Dates: start: 20080923, end: 20090730
  7. TRAZODONE HYDROCHLORIDE [Concomitant]
     Indication: INSOMNIA
     Dosage: 150 MG, UNK
     Route: 048
  8. HYDROCHLOROTHIAZDE TAB [Concomitant]
     Indication: HYPERTENSION
     Dosage: 25 MG, DAILY
     Route: 048

REACTIONS (7)
  - INJURY [None]
  - CEREBRAL INFARCTION [None]
  - EMOTIONAL DISTRESS [None]
  - DEPRESSION [None]
  - FEAR OF DEATH [None]
  - PAIN [None]
  - NERVOUSNESS [None]
